FAERS Safety Report 20335571 (Version 6)
Quarter: 2022Q1

REPORT INFORMATION
  Report Type: Report from Study
  Country: DE (occurrence: None)
  Receive Date: 20220114
  Receipt Date: 20220225
  Transmission Date: 20220423
  Serious: Yes (Hospitalization)
  Sender: FDA-Public Use
  Company Number: DE-Eisai Medical Research-EC-2022-106678

PATIENT
  Age: 66 Year
  Sex: Male
  Weight: 75 kg

DRUGS (18)
  1. LENVATINIB [Suspect]
     Active Substance: LENVATINIB
     Indication: Hormone-refractory prostate cancer
     Route: 048
     Dates: start: 20211118, end: 20220109
  2. LENVATINIB [Suspect]
     Active Substance: LENVATINIB
     Indication: Prostate cancer metastatic
     Route: 048
     Dates: start: 20220202
  3. PEMBROLIZUMAB [Suspect]
     Active Substance: PEMBROLIZUMAB
     Indication: Hormone-refractory prostate cancer
     Route: 042
     Dates: start: 20211118, end: 20211118
  4. PEMBROLIZUMAB [Suspect]
     Active Substance: PEMBROLIZUMAB
     Indication: Prostate cancer metastatic
     Route: 042
     Dates: start: 20211207, end: 20211207
  5. PEMBROLIZUMAB [Suspect]
     Active Substance: PEMBROLIZUMAB
     Route: 042
     Dates: start: 20211227, end: 20220118
  6. PANTOPRAZOLE [Concomitant]
     Active Substance: PANTOPRAZOLE
     Dates: start: 202110
  7. METOPROLOL [Concomitant]
     Active Substance: METOPROLOL
     Dates: start: 201601, end: 20220131
  8. SIMVASTATIN [Concomitant]
     Active Substance: SIMVASTATIN
     Dates: start: 201601
  9. ASPIRIN [Concomitant]
     Active Substance: ASPIRIN
     Dates: start: 201601
  10. EZETIMIBE [Concomitant]
     Active Substance: EZETIMIBE
     Dates: start: 201601
  11. METFORMIN [Concomitant]
     Active Substance: METFORMIN HYDROCHLORIDE
     Dates: start: 201601, end: 20220106
  12. TAMSULOSIN [Concomitant]
     Active Substance: TAMSULOSIN
     Dates: start: 201901
  13. TOLTERODINE [Concomitant]
     Active Substance: TOLTERODINE
     Dates: start: 201901
  14. TRENANTONE [Concomitant]
     Active Substance: LEUPROLIDE ACETATE
     Dates: start: 201903
  15. ZOMETA [Concomitant]
     Active Substance: ZOLEDRONIC ACID
     Dates: start: 202101
  16. NALOXONE HYDROCHLORIDE\TILIDINE HYDROCHLORIDE [Concomitant]
     Active Substance: NALOXONE HYDROCHLORIDE\TILIDINE HYDROCHLORIDE
     Dates: start: 20211015
  17. METAMIZOLE [Concomitant]
     Active Substance: METAMIZOLE
     Dates: start: 202110
  18. DIETARY SUPPLEMENT [Concomitant]
     Active Substance: DIETARY SUPPLEMENT
     Dates: start: 20211202

REACTIONS (1)
  - Dyspnoea [Recovered/Resolved]

NARRATIVE: CASE EVENT DATE: 20211220
